FAERS Safety Report 7747012-8 (Version None)
Quarter: 2011Q3

REPORT INFORMATION
  Report Type: 
  Country: None (occurrence: None)
  Receive Date: 20110913
  Receipt Date: 20110907
  Transmission Date: 20111222
  Serious: Yes (Other)
  Sender: FDA-Public Use
  Company Number: PHEH2011US02750

PATIENT
  Sex: Female
  Weight: 52.154 kg

DRUGS (3)
  1. GILENYA [Suspect]
     Dosage: 0.5 MG, QD
     Route: 048
  2. GILENYA [Suspect]
     Indication: MULTIPLE SCLEROSIS
     Dosage: 0.5 MG, QD
     Route: 048
     Dates: start: 20110805, end: 20110808
  3. PREMARIN [Concomitant]
     Indication: HORMONE REPLACEMENT THERAPY
     Dosage: UNK UKN, QD
     Route: 048

REACTIONS (4)
  - HEADACHE [None]
  - UHTHOFF'S PHENOMENON [None]
  - BLINDNESS TRANSIENT [None]
  - MUSCLE CONTRACTIONS INVOLUNTARY [None]
